FAERS Safety Report 12735466 (Version 1)
Quarter: 2016Q3

REPORT INFORMATION
  Report Type: Spontaneous
  Country: US (occurrence: US)
  Receive Date: 20160912
  Receipt Date: 20160912
  Transmission Date: 20161109
  Serious: Yes (Hospitalization, Other)
  Sender: FDA-Public Use
  Company Number: US-JNJFOC-20160907284

PATIENT
  Age: 75 Year
  Sex: Male

DRUGS (19)
  1. HYDROCHLOROTHIAZIDE. [Concomitant]
     Active Substance: HYDROCHLOROTHIAZIDE
  2. VALIUM [Concomitant]
     Active Substance: DIAZEPAM
  3. CLOBETASOL [Concomitant]
     Active Substance: CLOBETASOL
  4. IMBRUVICA [Suspect]
     Active Substance: IBRUTINIB
     Indication: CHRONIC LYMPHOCYTIC LEUKAEMIA
     Route: 065
     Dates: start: 201406, end: 201407
  5. WARFARIN [Suspect]
     Active Substance: WARFARIN
     Indication: PRODUCT USED FOR UNKNOWN INDICATION
  6. METOPROLOL SUCCINATE. [Concomitant]
     Active Substance: METOPROLOL SUCCINATE
  7. TRAZODONE [Concomitant]
     Active Substance: TRAZODONE HYDROCHLORIDE
  8. IMBRUVICA [Suspect]
     Active Substance: IBRUTINIB
     Indication: CHRONIC LYMPHOCYTIC LEUKAEMIA
     Route: 065
     Dates: start: 201410, end: 201411
  9. BUDESONIDE. [Concomitant]
     Active Substance: BUDESONIDE
  10. PERFOROMIST [Concomitant]
     Active Substance: FORMOTEROL FUMARATE DIHYDRATE
     Dosage: 20MCG/2ML
  11. SIMVASTATIN. [Concomitant]
     Active Substance: SIMVASTATIN
  12. IMMUNOGLOBULIN HUMAN NORMAL [Concomitant]
     Active Substance: HUMAN IMMUNOGLOBULIN G
  13. ALBUTEROL SULFATE. [Concomitant]
     Active Substance: ALBUTEROL SULFATE
  14. VITAMIN B12 [Concomitant]
     Active Substance: CYANOCOBALAMIN
  15. ACYCLOVIR. [Concomitant]
     Active Substance: ACYCLOVIR
  16. IRON [Concomitant]
     Active Substance: IRON
  17. PERCOCET [Concomitant]
     Active Substance: ACETAMINOPHEN\OXYCODONE HYDROCHLORIDE
     Dosage: 5 MG-325 MG
  18. PROAIR HFA [Concomitant]
     Active Substance: ALBUTEROL SULFATE
  19. VITAMIN B-6 [Concomitant]
     Active Substance: PYRIDOXINE

REACTIONS (14)
  - Family stress [Unknown]
  - Heart rate irregular [Unknown]
  - Insomnia [Unknown]
  - Meningioma [Recovering/Resolving]
  - Seizure [Recovered/Resolved]
  - Subdural haematoma [Recovering/Resolving]
  - Anxiety [Unknown]
  - Disease progression [Unknown]
  - Rash [Unknown]
  - Fatigue [Unknown]
  - White blood cell count increased [Unknown]
  - Hot flush [Unknown]
  - Depression [Unknown]
  - Purpura senile [Unknown]

NARRATIVE: CASE EVENT DATE: 2014
